FAERS Safety Report 15967947 (Version 1)
Quarter: 2019Q1

REPORT INFORMATION
  Report Type: Spontaneous
  Country: US (occurrence: US)
  Receive Date: 20190215
  Receipt Date: 20190215
  Transmission Date: 20190418
  Serious: Yes (Other)
  Sender: FDA-Public Use
  Company Number: None

PATIENT
  Age: 64 Year
  Sex: Female
  Weight: 78.75 kg

DRUGS (1)
  1. IRBESARTAN 150 MG [Suspect]
     Active Substance: IRBESARTAN
     Indication: HYPERTENSION
     Dosage: ?          QUANTITY:1 CAPSULE(S);?
     Route: 048
     Dates: start: 20180507, end: 20190211

REACTIONS (4)
  - Paraesthesia oral [None]
  - Dry mouth [None]
  - Hypoaesthesia oral [None]
  - Dysgeusia [None]

NARRATIVE: CASE EVENT DATE: 20180507
